FAERS Safety Report 19968684 (Version 3)
Quarter: 2022Q1

REPORT INFORMATION
  Report Type: Spontaneous
  Country: US (occurrence: US)
  Receive Date: 20211019
  Receipt Date: 20220216
  Transmission Date: 20220423
  Serious: No
  Sender: FDA-Public Use
  Company Number: US-PFIZER INC-202101250899

PATIENT
  Age: 15 Year
  Sex: Male
  Weight: 58.97 kg

DRUGS (2)
  1. GENOTROPIN [Suspect]
     Active Substance: SOMATROPIN
     Indication: Short stature
     Dosage: 1.8 MG, DAILY
     Dates: start: 20180324
  2. GENOTROPIN [Suspect]
     Active Substance: SOMATROPIN
     Dosage: 3.2 MG, DAILY

REACTIONS (4)
  - Acne [Unknown]
  - Drug dose omission by device [Unknown]
  - Device information output issue [Unknown]
  - Device breakage [Unknown]

NARRATIVE: CASE EVENT DATE: 20210920
